FAERS Safety Report 4463663-0 (Version None)
Quarter: 2004Q3

REPORT INFORMATION
  Report Type: 
  Country: None (occurrence: None)
  Receive Date: 20040928
  Receipt Date: 20040913
  Transmission Date: 20050211
  Serious: Yes (Death, Life-Threatening, Hospitalization)
  Sender: FDA-Public Use
  Company Number: F01200402799

PATIENT
  Age: 67 Year
  Sex: Female

DRUGS (13)
  1. OXALIPLATIN - SOLUTION - 85 MG/M2 [Suspect]
     Indication: COLORECTAL CANCER METASTATIC
     Dosage: 85 MG/M2 Q2W
     Dates: start: 20040811, end: 20040811
  2. FLUOROURACIL [Suspect]
     Dosage: 500 MG/M2  BOLUS ON D1, D8 AND D15, Q4W A FEW MINS
     Dates: start: 20040811, end: 20040811
  3. LEUCOVORIN CALCIUM [Suspect]
     Dosage: 20 MG/M2 ON D1, D8 AND D15, Q4W A FEW MINS
     Dates: start: 20040811, end: 20040811
  4. AVASTIN [Suspect]
     Dosage: 5 MG/K OVER 30-90 MINUTES IV INFUSION ON D1, D15, Q4W
     Dates: start: 20040811, end: 20040811
  5. AVANDIA [Concomitant]
  6. GLUCOPHAGE [Concomitant]
  7. WARFARIN SODIUM [Concomitant]
  8. AMBIEN [Concomitant]
  9. CALCIUM [Concomitant]
  10. MULTI-VITAMINS [Concomitant]
  11. POTASSIUM [Concomitant]
  12. LORTAB (HYDROCODONE TARTRATE/PARACETAMOL) [Concomitant]
  13. LASIX [Concomitant]

REACTIONS (9)
  - ANASTOMOTIC COMPLICATION [None]
  - DECREASED APPETITE [None]
  - ENTEROCOCCAL INFECTION [None]
  - INTERNATIONAL NORMALISED RATIO INCREASED [None]
  - INTESTINAL PERFORATION [None]
  - KLEBSIELLA INFECTION [None]
  - LACTOBACILLUS INFECTION [None]
  - PERITONITIS [None]
  - SEPSIS [None]
